FAERS Safety Report 4565356-8 (Version None)
Quarter: 2005Q1

REPORT INFORMATION
  Report Type: 
  Country: None (occurrence: None)
  Receive Date: 20050126
  Receipt Date: 20050110
  Transmission Date: 20050727
  Serious: Yes (Hospitalization)
  Sender: FDA-Public Use
  Company Number: USA040670501

PATIENT
  Age: 66 Year
  Sex: Female
  Weight: 64 kg

DRUGS (6)
  1. FORTEO [Suspect]
     Indication: OSTEOPOROSIS
     Dosage: 20 UG DAY
     Dates: start: 20040614
  2. FEMARA [Concomitant]
  3. CORTISONE [Concomitant]
  4. SYNTHROID [Concomitant]
  5. GLUCOSAMINE [Concomitant]
  6. CITRACAL (CALCIUM CITRATE) [Concomitant]

REACTIONS (11)
  - ARTHRALGIA [None]
  - ARTHROPATHY [None]
  - ERYTHEMA [None]
  - EYE IRRITATION [None]
  - HEADACHE [None]
  - HOT FLUSH [None]
  - HYPERHIDROSIS [None]
  - PAIN [None]
  - PHARMACEUTICAL PRODUCT COMPLAINT [None]
  - SENSATION OF PRESSURE [None]
  - SWELLING FACE [None]
